FAERS Safety Report 8507412 (Version 3)
Quarter: 2013Q2

REPORT INFORMATION
  Report Type: Spontaneous
  Country: US (occurrence: US)
  Receive Date: 20120412
  Receipt Date: 20130524
  Transmission Date: 20140414
  Serious: Yes (Other)
  Sender: FDA-Public Use
  Company Number: US-ASTRAZENECA-2012SE05722

PATIENT
  Age: 49 Year
  Sex: Female

DRUGS (1)
  1. NEXIUM [Suspect]
     Route: 048

REACTIONS (16)
  - Pain [Unknown]
  - Suicidal ideation [Unknown]
  - Gastrooesophageal reflux disease [Unknown]
  - Pain [Unknown]
  - Pharyngeal ulceration [Unknown]
  - Gastric ulcer [Unknown]
  - Aphagia [Unknown]
  - Fibromyalgia [Unknown]
  - Dyspepsia [Unknown]
  - Dyspepsia [Unknown]
  - Oesophageal motility disorder [Unknown]
  - Flatulence [Unknown]
  - Abdominal pain upper [Unknown]
  - Abdominal discomfort [Unknown]
  - Drug dose omission [Unknown]
  - Drug effect incomplete [Unknown]
